FAERS Safety Report 7755572-6 (Version None)
Quarter: 2011Q3

REPORT INFORMATION
  Report Type: 
  Country: None (occurrence: None)
  Receive Date: 20110916
  Receipt Date: 20110909
  Transmission Date: 20111222
  Serious: Yes (Other)
  Sender: FDA-Public Use
  Company Number: JP-PFIZER INC-2011213237

PATIENT
  Age: 82 Year
  Sex: Male

DRUGS (1)
  1. ARTANE [Suspect]
     Dosage: 2 MG DAILY
     Route: 048

REACTIONS (2)
  - HYPOGLYCAEMIA [None]
  - BLOOD INSULIN INCREASED [None]
